FAERS Safety Report 20891561 (Version 2)
Quarter: 2023Q1

REPORT INFORMATION
  Report Type: Spontaneous
  Country: ID (occurrence: ID)
  Receive Date: 20220530
  Receipt Date: 20230212
  Transmission Date: 20230417
  Serious: Yes (Life-Threatening, Hospitalization, Other)
  Sender: FDA-Public Use
  Company Number: ID-LUPIN PHARMACEUTICALS INC.-2022-07659

PATIENT
  Age: 58 Year
  Sex: Male

DRUGS (4)
  1. DICLOFENAC SODIUM [Suspect]
     Active Substance: DICLOFENAC SODIUM
     Indication: Limb discomfort
     Dosage: 50 MG
     Route: 048
  2. MEFENAMIC ACID [Suspect]
     Active Substance: MEFENAMIC ACID
     Indication: Product used for unknown indication
     Dosage: UNK
     Route: 065
  3. SIMVASTATIN [Concomitant]
     Active Substance: SIMVASTATIN
     Indication: Dyslipidaemia
     Dosage: UNK
     Route: 065
  4. AMLODIPINE [Concomitant]
     Active Substance: AMLODIPINE BESYLATE
     Indication: Hypertension
     Dosage: UNK
     Route: 065

REACTIONS (4)
  - Kounis syndrome [Recovered/Resolved]
  - Anaphylactic shock [Recovered/Resolved]
  - Urticaria [Recovered/Resolved]
  - Angioedema [Recovered/Resolved]
